FAERS Safety Report 22084626 (Version 1)
Quarter: 2023Q1

REPORT INFORMATION
  Report Type: Spontaneous
  Country: US (occurrence: US)
  Receive Date: 20230310
  Receipt Date: 20230310
  Transmission Date: 20230417
  Serious: Yes (Other)
  Sender: FDA-Public Use
  Company Number: US-ELI_LILLY_AND_COMPANY-US202303001084

PATIENT
  Age: 58 Year
  Sex: Female

DRUGS (1)
  1. TALTZ [Suspect]
     Active Substance: IXEKIZUMAB
     Indication: Psoriasis
     Dosage: 80 MG, UNKNOWN
     Route: 065
     Dates: start: 20230208

REACTIONS (2)
  - Vasculitis [Recovering/Resolving]
  - Blood pressure abnormal [Unknown]

NARRATIVE: CASE EVENT DATE: 20230218
